FAERS Safety Report 5739904-6 (Version None)
Quarter: 2008Q2

REPORT INFORMATION
  Report Type: 
  Country: None (occurrence: None)
  Receive Date: 20080516
  Receipt Date: 20080512
  Transmission Date: 20081010
  Serious: Yes (Other)
  Sender: FDA-Public Use
  Company Number: US-BAYER-200813379NA

PATIENT
  Age: 22 Year
  Sex: Female
  Weight: 91 kg

DRUGS (4)
  1. MIRENA [Suspect]
     Indication: CONTRACEPTION
     Route: 015
     Dates: start: 20071103
  2. ROCEPHIN [Concomitant]
     Indication: VAGINITIS BACTERIAL
  3. FLAGYL [Concomitant]
     Indication: VAGINITIS BACTERIAL
     Route: 017
  4. ESTROGEN (NOS) [Concomitant]
     Indication: VAGINAL HAEMORRHAGE

REACTIONS (10)
  - ANAEMIA [None]
  - ANGER [None]
  - DEPRESSION [None]
  - DIZZINESS [None]
  - NAUSEA [None]
  - OVARIAN CYST [None]
  - POST PROCEDURAL HAEMORRHAGE [None]
  - SUICIDAL IDEATION [None]
  - VAGINAL HAEMORRHAGE [None]
  - VAGINITIS BACTERIAL [None]
